FAERS Safety Report 24055438 (Version 1)
Quarter: 2024Q3

REPORT INFORMATION
  Report Type: Spontaneous
  Country: FR (occurrence: FR)
  Receive Date: 20240705
  Receipt Date: 20240705
  Transmission Date: 20241016
  Serious: Yes (Hospitalization)
  Sender: TEVA
  Company Number: None

PATIENT
  Age: 59 Year
  Sex: Male
  Weight: 80 kg

DRUGS (10)
  1. METFORMIN [Suspect]
     Active Substance: METFORMIN HYDROCHLORIDE
     Indication: Type 2 diabetes mellitus
     Dosage: 1000MG X 2/DAY
     Route: 048
     Dates: start: 2019, end: 20240513
  2. KARDEGIC [Concomitant]
     Active Substance: ASPIRIN DL-LYSINE
     Indication: Disease risk factor
     Dosage: 1-0-0
     Route: 048
     Dates: start: 2024, end: 20240612
  3. ACETAMINOPHEN\OPIUM [Concomitant]
     Active Substance: ACETAMINOPHEN\OPIUM
     Indication: Pain
     Dosage: 500 MG/25 MG
     Route: 048
     Dates: start: 2024
  4. OMEPRAZOLE [Concomitant]
     Active Substance: OMEPRAZOLE
     Indication: Gastrooesophageal reflux disease
     Dosage: 0-0-1
     Route: 048
     Dates: start: 2024, end: 20240612
  5. TAHOR [Concomitant]
     Active Substance: ATORVASTATIN CALCIUM
     Indication: Disease risk factor
     Dosage: 80MG 0-0-1
     Route: 048
     Dates: start: 2024, end: 20240612
  6. ESIDREX [Concomitant]
     Active Substance: HYDROCHLOROTHIAZIDE
     Indication: Hypertension
     Dosage: 1-0-0
     Route: 048
     Dates: start: 2024, end: 20240612
  7. EXFORGE [Concomitant]
     Active Substance: AMLODIPINE BESYLATE\VALSARTAN
     Indication: Hypertension
     Dosage: 10 MG/160 MG, 1-0-0
     Route: 048
     Dates: start: 2024, end: 20240612
  8. HUMALOG [Concomitant]
     Active Substance: INSULIN LISPRO
     Indication: Type 2 diabetes mellitus
     Dosage: 100 IU/ML, SOLUTION FOR INJECTION IN VIAL; 1 IU IF NEEDED
     Route: 058
     Dates: start: 20240415
  9. INSULIN GLARGINE [Concomitant]
     Active Substance: INSULIN GLARGINE
     Indication: Type 2 diabetes mellitus
     Dosage: 50 IU AT 9 P.M. IN SC (BACTERIA/ESCHERICHIA COLI)
     Route: 058
     Dates: start: 20240415
  10. PRIMPERAN [Concomitant]
     Active Substance: METOCLOPRAMIDE HYDROCHLORIDE
     Indication: Antiemetic supportive care
     Dosage: SCORED TABLET 1 TEASPOON 30 MIN BEFORE EACH BAG
     Route: 048
     Dates: start: 20240512

REACTIONS (1)
  - Lactic acidosis [Recovered/Resolved]

NARRATIVE: CASE EVENT DATE: 20240513
